FAERS Safety Report 6307830-X (Version None)
Quarter: 2009Q3

REPORT INFORMATION
  Report Type: 
  Country: None (occurrence: None)
  Receive Date: 20090812
  Receipt Date: 20090812
  Transmission Date: 20100115
  Serious: Yes (Death)
  Sender: FDA-Public Use
  Company Number: None

PATIENT
  Age: 26 Year
  Sex: Female
  Weight: 65.7716 kg

DRUGS (2)
  1. ZOLOFT [Suspect]
     Dosage: 200MG
     Dates: start: 20050301, end: 20050501
  2. LEXAPRO [Suspect]
     Indication: ANXIETY
     Dosage: 10MG
     Dates: start: 20061210, end: 20070116

REACTIONS (1)
  - COMPLETED SUICIDE [None]
